FAERS Safety Report 5829241-3 (Version None)
Quarter: 2008Q3

REPORT INFORMATION
  Report Type: 
  Country: None (occurrence: None)
  Receive Date: 20080731
  Receipt Date: 20080724
  Transmission Date: 20090109
  Serious: Yes (Other)
  Sender: FDA-Public Use
  Company Number: TR-BOEHRINGER INGELHEIM GMBH, GERMANY-2008-BP-11605RO

PATIENT
  Age: 27 Year
  Sex: Male

DRUGS (7)
  1. CITALOPRAM HYDROBROMIDE [Suspect]
     Indication: PANIC DISORDER
  2. CITALOPRAM HYDROBROMIDE [Suspect]
     Indication: AGORAPHOBIA
  3. CITALOPRAM HYDROBROMIDE [Suspect]
     Indication: DEPRESSION
  4. ALPRAZOLAM [Suspect]
     Indication: PANIC DISORDER
  5. ALPRAZOLAM [Suspect]
     Indication: AGORAPHOBIA
  6. ALPRAZOLAM [Suspect]
     Indication: DEPRESSION
  7. PAROXETINE HCL [Concomitant]
     Indication: PANIC DISORDER

REACTIONS (1)
  - EJACULATION DISORDER [None]
